FAERS Safety Report 5068998-9 (Version None)
Quarter: 2006Q3

REPORT INFORMATION
  Report Type: 
  Country: None (occurrence: None)
  Receive Date: 20060802
  Receipt Date: 20060718
  Transmission Date: 20061208
  Serious: Yes (Death, Other)
  Sender: FDA-Public Use
  Company Number: PHBS2006PH10705

PATIENT
  Age: 36 Year
  Sex: Female

DRUGS (19)
  1. ZELNORM [Suspect]
     Indication: CONSTIPATION
     Dosage: 6 MG, TID
     Route: 048
     Dates: start: 20060620, end: 20060629
  2. NOVALUZID [Concomitant]
  3. HEMARATE [Concomitant]
  4. FLUIMUCIL [Concomitant]
     Route: 048
  5. CRESTOR [Concomitant]
  6. LIPANTHYL [Concomitant]
     Route: 048
  7. INDERAL [Concomitant]
  8. SIMVASTATIN [Concomitant]
  9. FLUCONAZOLE [Concomitant]
  10. SOLU-CORTEF [Concomitant]
  11. MUCOSTA [Concomitant]
  12. CALTRATE PLUS [Concomitant]
  13. RANITIDINE [Concomitant]
  14. VENTOLIN [Concomitant]
  15. TUMS [Concomitant]
  16. CYANOCOBALAMIN [Concomitant]
  17. QUADTAB [Concomitant]
  18. VITAMIN B COMPLEX CAP [Concomitant]
  19. SOMAZINE [Concomitant]

REACTIONS (4)
  - ABDOMINAL PAIN UPPER [None]
  - DEATH [None]
  - ILEUS [None]
  - SPLENOMEGALY [None]
